FAERS Safety Report 13272785 (Version 1)
Quarter: 2017Q1

REPORT INFORMATION
  Report Type: Spontaneous
  Country: None (occurrence: US)
  Receive Date: 20170224
  Receipt Date: 20170224
  Transmission Date: 20170428
  Serious: No
  Sender: FDA-Public Use
  Company Number: None

PATIENT
  Sex: Female

DRUGS (20)
  1. ALREX [Concomitant]
     Active Substance: LOTEPREDNOL ETABONATE
  2. VITAMIN E [Concomitant]
     Active Substance: .ALPHA.-TOCOPHEROL
  3. VITAMIN C [Concomitant]
     Active Substance: ASCORBIC ACID
  4. METHOTREXATE. [Concomitant]
     Active Substance: METHOTREXATE
  5. SYNVISC [Concomitant]
     Active Substance: HYALURONATE SODIUM
  6. ALLEGRA-D [Concomitant]
     Active Substance: FEXOFENADINE\PSEUDOEPHEDRINE
  7. ASPIRIN. [Concomitant]
     Active Substance: ASPIRIN
  8. CYMBALTA [Concomitant]
     Active Substance: DULOXETINE HYDROCHLORIDE
  9. LOSARTAN POTASSIUM. [Concomitant]
     Active Substance: LOSARTAN POTASSIUM
  10. BETA CAROTENE [Concomitant]
  11. BYSTOLIC [Concomitant]
     Active Substance: NEBIVOLOL HYDROCHLORIDE
  12. GLIPIZIDE. [Concomitant]
     Active Substance: GLIPIZIDE
  13. HUMIRA [Suspect]
     Active Substance: ADALIMUMAB
     Indication: RHEUMATOID ARTHRITIS
     Route: 058
     Dates: start: 20160326
  14. COLCHICINE. [Concomitant]
     Active Substance: COLCHICINE
  15. FOLIC ACID. [Concomitant]
     Active Substance: FOLIC ACID
  16. SIMVASTATIN. [Concomitant]
     Active Substance: SIMVASTATIN
  17. B12-ACTIVE [Concomitant]
  18. CALCIUM [Concomitant]
     Active Substance: CALCIUM
  19. PRAVASTATIN. [Concomitant]
     Active Substance: PRAVASTATIN
  20. PRILOSEC [Concomitant]
     Active Substance: OMEPRAZOLE MAGNESIUM

REACTIONS (1)
  - Neoplasm malignant [None]
